FAERS Safety Report 6984904-1 (Version None)
Quarter: 2010Q3

REPORT INFORMATION
  Report Type: 
  Country: None (occurrence: None)
  Receive Date: 20100913
  Receipt Date: 20100830
  Transmission Date: 20110219
  Serious: Yes (Hospitalization)
  Sender: FDA-Public Use
  Company Number: 2010P1001245

PATIENT
  Age: 54 Year
  Sex: Male

DRUGS (1)
  1. GLYBURIDE [Suspect]
     Dosage: X1;PO
     Route: 048

REACTIONS (6)
  - ATAXIA [None]
  - BLOOD PRESSURE INCREASED [None]
  - CONFUSIONAL STATE [None]
  - DYSARTHRIA [None]
  - HYPERHIDROSIS [None]
  - HYPOGLYCAEMIA [None]
